FAERS Safety Report 5448195-5 (Version None)
Quarter: 2007Q3

REPORT INFORMATION
  Report Type: 
  Country: None (occurrence: None)
  Receive Date: 20070907
  Receipt Date: 20070907
  Transmission Date: 20080115
  Serious: Yes (Hospitalization)
  Sender: FDA-Public Use
  Company Number: None

PATIENT
  Sex: Male
  Weight: 74.1 kg

DRUGS (6)
  1. ZOMETA [Suspect]
     Indication: BRAIN NEOPLASM
     Dosage: 4MG Q 90 DAYS IV
     Route: 042
     Dates: start: 20070208
  2. ZOMETA [Suspect]
     Indication: BRAIN NEOPLASM
     Dosage: 4MG Q 90 DAYS IV
     Route: 042
     Dates: start: 20070503
  3. ZOMETA [Suspect]
     Indication: BRAIN NEOPLASM
     Dosage: 4MG Q 90 DAYS IV
     Route: 042
     Dates: start: 20070802
  4. DILANTIN [Concomitant]
  5. TEMODAR [Concomitant]
  6. AVASTIN [Concomitant]

REACTIONS (6)
  - CELLULITIS [None]
  - CONFUSIONAL STATE [None]
  - HAEMORRHAGE [None]
  - JAW DISORDER [None]
  - NEOPLASM PROGRESSION [None]
  - PERIODONTAL INFECTION [None]
